FAERS Safety Report 21514753 (Version 1)
Quarter: 2022Q4

REPORT INFORMATION
  Report Type: Spontaneous
  Country: CN (occurrence: CN)
  Receive Date: 20221027
  Receipt Date: 20221027
  Transmission Date: 20230113
  Serious: Yes (Other)
  Sender: FDA-Public Use
  Company Number: CN-PFIZER INC-PV202200090034

PATIENT
  Age: 6 Year
  Sex: Male
  Weight: 21 kg

DRUGS (4)
  1. METHYLPREDNISOLONE SODIUM SUCCINATE [Suspect]
     Active Substance: METHYLPREDNISOLONE SODIUM SUCCINATE
     Indication: Myelin oligodendrocyte glycoprotein antibody-associated disease
     Dosage: 0.2 G, 1X/DAY
     Route: 041
     Dates: start: 20220806, end: 20220808
  2. METHYLPREDNISOLONE SODIUM SUCCINATE [Suspect]
     Active Substance: METHYLPREDNISOLONE SODIUM SUCCINATE
     Dosage: 0.4 G, 1X/DAY
     Route: 041
     Dates: start: 20220809, end: 20220811
  3. DEXTROSE\SODIUM CHLORIDE [Concomitant]
     Active Substance: DEXTROSE\SODIUM CHLORIDE
     Dosage: 4:1 GLUCOSE / SODIUM CHLORIDE 100ML QD
     Route: 041
     Dates: start: 20220806, end: 20220808
  4. DEXTROSE\SODIUM CHLORIDE [Concomitant]
     Active Substance: DEXTROSE\SODIUM CHLORIDE
     Dosage: 4:1 GLUCOSE / SODIUM CHLORIDE 250ML QD
     Route: 041
     Dates: start: 20220809, end: 20220811

REACTIONS (1)
  - Ocular hypertension [Recovering/Resolving]

NARRATIVE: CASE EVENT DATE: 20220809
